FAERS Safety Report 23217071 (Version 1)
Quarter: 2023Q4

REPORT INFORMATION
  Report Type: Report from Study
  Country: US (occurrence: US)
  Receive Date: 20231122
  Receipt Date: 20231122
  Transmission Date: 20240110
  Serious: Yes (Hospitalization, Other)
  Sender: FDA-Public Use
  Company Number: US-ASTELLAS-2023US023662

PATIENT
  Age: 73 Year
  Sex: Male

DRUGS (11)
  1. ENZALUTAMIDE [Suspect]
     Active Substance: ENZALUTAMIDE
     Indication: Prostate cancer
     Dosage: 160 MG (4X40 MG), ONCE DAILY
     Route: 048
     Dates: start: 20230106, end: 202306
  2. TAMSULOSIN [Concomitant]
     Active Substance: TAMSULOSIN
     Indication: Benign prostatic hyperplasia
     Dosage: 0.4 MG, ONCE DAILY 1/2 HOUR FOLLOWING THE SAME MEALL EACH DAY FOR 90 DAYS
     Route: 048
     Dates: start: 20230616
  3. TAMSULOSIN [Concomitant]
     Active Substance: TAMSULOSIN
     Dosage: 0.8 MG, ONCE DAILY 1/2 HOUR FOLLOWING THE SAME MEALL EACH DAY FOR 90 DAYS
     Route: 048
     Dates: start: 20230721
  4. ZOLPIDEM TARTRATE [Concomitant]
     Active Substance: ZOLPIDEM TARTRATE
     Indication: Product used for unknown indication
     Route: 048
     Dates: start: 20141114
  5. ATORVASTATIN [Concomitant]
     Active Substance: ATORVASTATIN
     Indication: Product used for unknown indication
     Route: 048
     Dates: start: 20141123
  6. GABAPENTIN [Concomitant]
     Active Substance: GABAPENTIN
     Indication: Product used for unknown indication
     Route: 048
  7. METFORMIN [Concomitant]
     Active Substance: METFORMIN HYDROCHLORIDE
     Indication: Product used for unknown indication
     Dosage: 1000 MG, TWICE DAILY (WITH MORNING AND EVENING MEALS)
     Route: 048
  8. TRIBENZOR [Concomitant]
     Active Substance: AMLODIPINE BESYLATE\HYDROCHLOROTHIAZIDE\OLMESARTAN MEDOXOMIL
     Indication: Product used for unknown indication
     Dosage: UNK UNK, UNKNOWN FREQ. (40-10-25MG)
     Route: 048
     Dates: start: 20141123
  9. BACTRIM DS [Concomitant]
     Active Substance: SULFAMETHOXAZOLE\TRIMETHOPRIM
     Indication: Product used for unknown indication
     Dosage: 1 DF (800MG-160MG), EVERY 12 HOURS FOR 3 DAYS
     Route: 048
     Dates: start: 20230330
  10. CIPRO [Concomitant]
     Active Substance: CIPROFLOXACIN HYDROCHLORIDE
     Indication: Product used for unknown indication
     Dosage: 250 MG, EVERY 12 HOURS FOR 3 DAYS
     Route: 048
     Dates: start: 20230607
  11. SILDENAFIL [Concomitant]
     Active Substance: SILDENAFIL
     Indication: Erectile dysfunction
     Dosage: 1-5 TABLETS (20MG), AS NEEDED
     Route: 048
     Dates: start: 20230427

REACTIONS (3)
  - Seizure [Unknown]
  - Hallucination [Unknown]
  - Dizziness [Unknown]

NARRATIVE: CASE EVENT DATE: 20230601
